FAERS Safety Report 17961913 (Version 1)
Quarter: 2020Q2

REPORT INFORMATION
  Report Type: Spontaneous
  Country: US (occurrence: US)
  Receive Date: 20200629
  Receipt Date: 20200629
  Transmission Date: 20200714
  Serious: Yes (Hospitalization)
  Sender: FDA-Public Use
  Company Number: None

PATIENT
  Age: 58 Year
  Sex: Male

DRUGS (1)
  1. INDOMETHACIN (INDOMETHACIN 25MG CAP) [Suspect]
     Active Substance: INDOMETHACIN
     Indication: PAIN
     Dates: start: 20051107, end: 20190623

REACTIONS (2)
  - Anaphylactic reaction [None]
  - Expired product administered [None]

NARRATIVE: CASE EVENT DATE: 20191004
